FAERS Safety Report 18035503 (Version 1)
Quarter: 2020Q3

REPORT INFORMATION
  Report Type: Spontaneous
  Country: GB (occurrence: GB)
  Receive Date: 20200717
  Receipt Date: 20200717
  Transmission Date: 20201103
  Serious: Yes (Hospitalization)
  Sender: FDA-Public Use
  Company Number: GB-TEVA-2020-GB-1800885

PATIENT
  Age: 73 Year
  Sex: Female

DRUGS (1)
  1. INDAPAMIDE. [Suspect]
     Active Substance: INDAPAMIDE
     Indication: HYPERTENSION
     Dosage: 2.5 MILLIGRAM DAILY; EVERY MORNING.
     Route: 048
     Dates: start: 20200614, end: 20200622

REACTIONS (3)
  - Headache [Unknown]
  - Hyponatraemia [Not Recovered/Not Resolved]
  - Loss of consciousness [Unknown]
